FAERS Safety Report 13747547 (Version 1)
Quarter: 2017Q3

REPORT INFORMATION
  Report Type: Report from Study
  Country: US (occurrence: US)
  Receive Date: 20170712
  Receipt Date: 20170712
  Transmission Date: 20171127
  Serious: No
  Sender: FDA-Public Use
  Company Number: GXBR2017US001931

PATIENT
  Sex: Male
  Weight: 37.6 kg

DRUGS (1)
  1. OMNITROPE [Suspect]
     Active Substance: SOMATROPIN
     Indication: HYPOPITUITARISM
     Dosage: 1.5 MG, QD
     Route: 058
     Dates: start: 201201

REACTIONS (3)
  - Injection site pain [Not Recovered/Not Resolved]
  - Pharyngitis streptococcal [Unknown]
  - Contusion [Recovering/Resolving]
